FAERS Safety Report 15952093 (Version 2)
Quarter: 2019Q1

REPORT INFORMATION
  Report Type: Spontaneous
  Country: US (occurrence: US)
  Receive Date: 20190211
  Receipt Date: 20190215
  Transmission Date: 20190417
  Serious: No
  Sender: FDA-Public Use
  Company Number: US-ASTRAZENECA-2019SE23708

PATIENT
  Sex: Female

DRUGS (4)
  1. FASLODEX [Suspect]
     Active Substance: FULVESTRANT
     Route: 030
     Dates: start: 20181019, end: 20181020
  2. ARIMIDEX [Concomitant]
     Active Substance: ANASTROZOLE
     Route: 048
  3. TAMOXIFEN [Concomitant]
     Active Substance: TAMOXIFEN
     Route: 048
     Dates: start: 20181114
  4. IBRANCE [Suspect]
     Active Substance: PALBOCICLIB
     Indication: HORMONE REFRACTORY BREAST CANCER
     Route: 048
     Dates: start: 20180824

REACTIONS (1)
  - Drug intolerance [Unknown]
